FAERS Safety Report 4846940-0 (Version None)
Quarter: 2005Q4

REPORT INFORMATION
  Report Type: 
  Country: None (occurrence: None)
  Receive Date: 20051201
  Receipt Date: 20051125
  Transmission Date: 20060501
  Serious: Yes (Hospitalization, Other)
  Sender: FDA-Public Use
  Company Number: FRWYE184129NOV05

PATIENT
  Age: 49 Year
  Sex: Female

DRUGS (1)
  1. EFFEXOR XR [Suspect]
     Dosage: 75 MG 1X PER 1 DAY
     Route: 048
     Dates: start: 20050801, end: 20051125

REACTIONS (4)
  - CSF TEST ABNORMAL [None]
  - HEADACHE [None]
  - NAUSEA [None]
  - VOMITING [None]
